FAERS Safety Report 4906527-8 (Version None)
Quarter: 2006Q1

REPORT INFORMATION
  Report Type: 
  Country: None (occurrence: None)
  Receive Date: 20060206
  Receipt Date: 20060124
  Transmission Date: 20060701
  Serious: Yes (Hospitalization)
  Sender: FDA-Public Use
  Company Number: 200610137BYL

PATIENT
  Age: 25 Year
  Sex: Female

DRUGS (6)
  1. AVELOX [Suspect]
     Indication: PNEUMONIA
     Dosage: SEE IMAGE
     Route: 048
     Dates: start: 20060114, end: 20060118
  2. AVELOX [Suspect]
     Indication: PNEUMONIA
     Dosage: SEE IMAGE
     Route: 048
     Dates: start: 20060120, end: 20060121
  3. BROACT [Concomitant]
  4. CRAVIT [Concomitant]
  5. MUCODYNE [Concomitant]
  6. SELBEX [Concomitant]

REACTIONS (2)
  - PYREXIA [None]
  - RASH [None]
